FAERS Safety Report 17637504 (Version 1)
Quarter: 2020Q2

REPORT INFORMATION
  Report Type: Spontaneous
  Country: US (occurrence: US)
  Receive Date: 20200407
  Receipt Date: 20200407
  Transmission Date: 20200713
  Serious: Yes (Hospitalization, Other)
  Sender: FDA-Public Use
  Company Number: None

PATIENT
  Age: 61 Year
  Sex: Male

DRUGS (2)
  1. N/A [Concomitant]
     Active Substance: UNSPECIFIED INGREDIENT
  2. GLEOSTINE [Suspect]
     Active Substance: LOMUSTINE
     Indication: BRAIN NEOPLASM MALIGNANT
     Dosage: ?          OTHER FREQUENCY:DAY 1,EVERY 6 WEEK;?
     Route: 048
     Dates: start: 20191226

REACTIONS (5)
  - Mobility decreased [None]
  - Tremor [None]
  - Platelet count decreased [None]
  - Seizure [None]
  - Loss of personal independence in daily activities [None]
